FAERS Safety Report 5451903-0 (Version None)
Quarter: 2007Q3

REPORT INFORMATION
  Report Type: 
  Country: None (occurrence: None)
  Receive Date: 20070912
  Receipt Date: 20070830
  Transmission Date: 20080115
  Serious: Yes (Hospitalization)
  Sender: FDA-Public Use
  Company Number: 2007JP004102

PATIENT
  Age: 26 Year
  Sex: Female

DRUGS (4)
  1. PROGRAF [Suspect]
     Indication: DERMATITIS ATOPIC
     Dosage: 0.03%, TOPICAL
     Route: 061
     Dates: start: 19991210
  2. ALLEGRA [Concomitant]
  3. PETROLATUM PETROLATUM) EXTERNAL [Concomitant]
  4. STEROID EXTERNAL [Concomitant]

REACTIONS (1)
  - LYMPHOMA [None]
